FAERS Safety Report 25758585 (Version 1)
Quarter: 2025Q3

REPORT INFORMATION
  Report Type: Report from Study
  Country: BR (occurrence: BR)
  Receive Date: 20250904
  Receipt Date: 20250904
  Transmission Date: 20251021
  Serious: Yes (Other)
  Sender: JOHNSON AND JOHNSON
  Company Number: BR-JNJFOC-20250833897

PATIENT
  Age: 42 Year
  Sex: Male
  Weight: 120 kg

DRUGS (9)
  1. GOLIMUMAB [Suspect]
     Active Substance: GOLIMUMAB
     Indication: Ankylosing spondylitis
     Route: 058
     Dates: end: 20250630
  2. GOLIMUMAB [Suspect]
     Active Substance: GOLIMUMAB
  3. GOLIMUMAB [Suspect]
     Active Substance: GOLIMUMAB
  4. SIMPONI [Suspect]
     Active Substance: GOLIMUMAB
     Indication: Ankylosing spondylitis
     Route: 058
     Dates: end: 20250630
  5. SIMPONI [Suspect]
     Active Substance: GOLIMUMAB
  6. SECUKINUMAB [Suspect]
     Active Substance: SECUKINUMAB
     Indication: Ankylosing spondylitis
     Route: 065
  7. Metrotexato [Concomitant]
     Indication: Product used for unknown indication
  8. Metrotexato [Concomitant]
  9. Metrotexato [Concomitant]

REACTIONS (3)
  - Influenza [Not Recovered/Not Resolved]
  - Arthralgia [Unknown]
  - Asthma [Unknown]

NARRATIVE: CASE EVENT DATE: 20250101
